FAERS Safety Report 5110764-X (Version None)
Quarter: 2006Q3

REPORT INFORMATION
  Report Type: 
  Country: None (occurrence: None)
  Receive Date: 20060919
  Receipt Date: 20060907
  Transmission Date: 20061208
  Serious: Yes (Other)
  Sender: FDA-Public Use
  Company Number: US-2006-026661

PATIENT
  Sex: Female

DRUGS (1)
  1. CLIMARA PRO [Suspect]
     Dosage: 0.045/0.15, TRANSDERMAL
     Route: 062

REACTIONS (2)
  - OVARIAN MASS [None]
  - PHARMACEUTICAL PRODUCT COMPLAINT [None]
